FAERS Safety Report 10142737 (Version 1)
Quarter: 2014Q2

REPORT INFORMATION
  Report Type: Spontaneous
  Country: US (occurrence: None)
  Receive Date: 20140429
  Receipt Date: 20140429
  Transmission Date: 20141212
  Serious: Yes (Death)
  Sender: FDA-Public Use
  Company Number: None

PATIENT
  Age: 48 Year
  Sex: Male

DRUGS (8)
  1. CAPECITABINE [Suspect]
     Indication: RECTOSIGMOID CANCER
     Route: 048
     Dates: start: 20140402
  2. LASIX [Concomitant]
  3. PANTOPRAZOLE [Suspect]
  4. VIT D3 [Suspect]
  5. IRON [Suspect]
  6. LISINOPRIL [Concomitant]
  7. SIMVASTATIN [Concomitant]
  8. MORPHINE SULF [Concomitant]

REACTIONS (1)
  - Death [None]
